FAERS Safety Report 5007233-4 (Version None)
Quarter: 2006Q1

REPORT INFORMATION
  Report Type: 
  Country: None (occurrence: None)
  Receive Date: 20060320
  Receipt Date: 20050228
  Transmission Date: 20060701
  Serious: Yes (Disabling)
  Sender: FDA-Public Use
  Company Number: 2005-02-1855

PATIENT
  Age: 53 Year
  Sex: Male
  Weight: 72.5755 kg

DRUGS (2)
  1. PEG-INTRON [Suspect]
     Indication: HEPATITIS C
     Dosage: 96 MCG QWK
     Dates: start: 20050218
  2. RIBAVIRIN [Suspect]
     Indication: HEPATITIS C
     Dosage: ORAL
     Route: 048
     Dates: start: 20050218

REACTIONS (12)
  - BLOOD IRON INCREASED [None]
  - DEPRESSION [None]
  - DRY EYE [None]
  - DYSPNOEA [None]
  - FATIGUE [None]
  - IMPAIRED HEALING [None]
  - INFLUENZA LIKE ILLNESS [None]
  - INJECTION SITE REACTION [None]
  - PAIN [None]
  - RED BLOOD CELL COUNT DECREASED [None]
  - WHITE BLOOD CELL COUNT DECREASED [None]
  - WRONG TECHNIQUE IN DRUG USAGE PROCESS [None]
